FAERS Safety Report 23476419 (Version 1)
Quarter: 2024Q1

REPORT INFORMATION
  Report Type: Report from Study
  Country: US (occurrence: US)
  Receive Date: 20240204
  Receipt Date: 20240204
  Transmission Date: 20240409
  Serious: No
  Sender: FDA-Public Use
  Company Number: US-EXELIXIS-CABO-23063109

PATIENT
  Sex: Female
  Weight: 69.342 kg

DRUGS (1)
  1. CABOMETYX [Suspect]
     Active Substance: CABOZANTINIB S-MALATE
     Indication: Renal cancer
     Dosage: 40 MG, QD
     Route: 048

REACTIONS (5)
  - Abdominal discomfort [Unknown]
  - Neuralgia [Recovered/Resolved]
  - Thyroid disorder [Unknown]
  - Nausea [Unknown]
  - Vomiting [Unknown]
